FAERS Safety Report 9380331 (Version 1)
Quarter: 2013Q3

REPORT INFORMATION
  Report Type: Spontaneous
  Country: US (occurrence: US)
  Receive Date: 20130702
  Receipt Date: 20130702
  Transmission Date: 20140515
  Serious: No
  Sender: FDA-Public Use
  Company Number: US-009507513-98030041

PATIENT
  Sex: Male

DRUGS (2)
  1. PROPECIA [Suspect]
     Dosage: 1 MG, QD
     Route: 048
     Dates: start: 19980127
  2. ROGAINE [Concomitant]
     Dosage: UNK %, UNK

REACTIONS (4)
  - Alopecia [Unknown]
  - Alopecia [Unknown]
  - Cognitive disorder [Unknown]
  - Sexual dysfunction [Unknown]
